FAERS Safety Report 12832631 (Version 1)
Quarter: 2016Q4

REPORT INFORMATION
  Report Type: Spontaneous
  Country: US (occurrence: US)
  Receive Date: 20161010
  Receipt Date: 20161010
  Transmission Date: 20170207
  Serious: Yes (Hospitalization, Other)
  Sender: FDA-Public Use
  Company Number: US-ROCHE-1839066

PATIENT
  Sex: Female

DRUGS (3)
  1. HERCEPTIN [Suspect]
     Active Substance: TRASTUZUMAB
     Indication: BREAST CANCER METASTATIC
     Route: 065
  2. PERJETA [Suspect]
     Active Substance: PERTUZUMAB
     Indication: BREAST CANCER METASTATIC
     Route: 065
  3. MORPHINE [Concomitant]
     Active Substance: MORPHINE

REACTIONS (6)
  - Flushing [Unknown]
  - Skin reaction [Unknown]
  - Skin exfoliation [Unknown]
  - Diarrhoea [Unknown]
  - Mental status changes [Unknown]
  - Rash [Unknown]
